FAERS Safety Report 8190606-9 (Version None)
Quarter: 2012Q1

REPORT INFORMATION
  Report Type: 
  Country: None (occurrence: None)
  Receive Date: 20120307
  Receipt Date: 20120302
  Transmission Date: 20120608
  Serious: Yes (Death, Hospitalization)
  Sender: FDA-Public Use
  Company Number: US-SANOFI-AVENTIS-2012SA014510

PATIENT
  Age: 78 Year
  Sex: Male
  Weight: 53 kg

DRUGS (3)
  1. CISPLATIN [Suspect]
     Indication: SQUAMOUS CELL CARCINOMA
     Dosage: OVER 1-2 HOURS ON DAY 1
     Route: 042
     Dates: start: 20111102
  2. BEVACIZUMAB [Suspect]
     Indication: SQUAMOUS CELL CARCINOMA
     Dosage: OVER 30-90 MIN ON DAY 1
     Route: 042
     Dates: start: 20111102
  3. DOCETAXEL [Suspect]
     Indication: SQUAMOUS CELL CARCINOMA
     Route: 042
     Dates: start: 20111102

REACTIONS (3)
  - HAEMOPTYSIS [None]
  - SINUS TACHYCARDIA [None]
  - PHARYNGEAL HAEMORRHAGE [None]
